FAERS Safety Report 12334803 (Version 1)
Quarter: 2016Q2

REPORT INFORMATION
  Report Type: Spontaneous
  Country: FR (occurrence: FR)
  Receive Date: 20160504
  Receipt Date: 20160504
  Transmission Date: 20160815
  Serious: Yes (Hospitalization)
  Sender: FDA-Public Use
  Company Number: FR-ELI_LILLY_AND_COMPANY-FR201604007986

PATIENT
  Sex: Female

DRUGS (5)
  1. ADVAGRAF [Concomitant]
     Active Substance: TACROLIMUS
     Indication: DIABETES MELLITUS
     Dosage: UNK, UNKNOWN
     Route: 065
  2. HUMALOG MIX75/25 [Suspect]
     Active Substance: INSULIN LISPRO
     Indication: PRODUCT USED FOR UNKNOWN INDICATION
     Dosage: 22 IU, EACH MORNING
     Route: 065
     Dates: start: 2007
  3. METFORMINE [Concomitant]
     Active Substance: METFORMIN HYDROCHLORIDE
     Dosage: UNK, UNKNOWN
     Route: 065
  4. RIVOTRIL [Concomitant]
     Active Substance: CLONAZEPAM
     Dosage: UNK, UNKNOWN
     Route: 065
  5. HUMALOG MIX75/25 [Suspect]
     Active Substance: INSULIN LISPRO
     Dosage: 22 IU, EACH EVENING
     Route: 065
     Dates: start: 2007

REACTIONS (3)
  - Dry skin [Unknown]
  - Injection site mass [Unknown]
  - Glycosylated haemoglobin increased [Unknown]
